FAERS Safety Report 17163799 (Version 1)
Quarter: 2019Q4

REPORT INFORMATION
  Report Type: Spontaneous
  Country: HR (occurrence: HR)
  Receive Date: 20191217
  Receipt Date: 20191217
  Transmission Date: 20200122
  Serious: Yes (Other)
  Sender: FDA-Public Use
  Company Number: NVSC2019HR066488

PATIENT
  Sex: Male

DRUGS (10)
  1. MARTEFARIN [Concomitant]
     Active Substance: WARFARIN
     Indication: ATRIAL FIBRILLATION
     Dosage: 3 MG
     Route: 048
  2. DORETA [Concomitant]
     Active Substance: ACETAMINOPHEN\TRAMADOL HYDROCHLORIDE
     Indication: PSORIATIC ARTHROPATHY
     Dosage: 2 DF, QD (1-0-1 (+1 P.P.))
     Route: 048
  3. FOLACIN [Concomitant]
     Indication: PSORIATIC ARTHROPATHY
  4. METHOTREXATE. [Concomitant]
     Active Substance: METHOTREXATE
     Indication: PSORIATIC ARTHROPATHY
  5. COSENTYX [Suspect]
     Active Substance: SECUKINUMAB
     Indication: PSORIATIC ARTHROPATHY
  6. SILYMARIN [Concomitant]
     Active Substance: DIETARY SUPPLEMENT\HERBALS\MILK THISTLE
     Indication: LIVER DISORDER
     Dosage: 4 DF, QD
     Route: 048
  7. COSENTYX [Suspect]
     Active Substance: SECUKINUMAB
     Indication: PSORIASIS
     Dosage: 300 MG, QD
     Route: 058
     Dates: start: 20180807, end: 20190829
  8. METHOTREXATE. [Concomitant]
     Active Substance: METHOTREXATE
     Indication: PSORIASIS
     Dosage: 10MG, QW
     Route: 048
     Dates: start: 201904, end: 201908
  9. CORDARONE [Concomitant]
     Active Substance: AMIODARONE HYDROCHLORIDE
     Indication: PRODUCT USED FOR UNKNOWN INDICATION
     Dosage: 100 MG, QD (1/2-0-0)
     Route: 065
  10. FOLACIN [Concomitant]
     Indication: PSORIASIS
     Dosage: 5 MG, QW
     Route: 048
     Dates: start: 201904, end: 201908

REACTIONS (6)
  - Hilar lymphadenopathy [Unknown]
  - Pleural effusion [Unknown]
  - Metastases to bone [Unknown]
  - Metastases to adrenals [Unknown]
  - Lymphadenopathy mediastinal [Unknown]
  - Lung neoplasm malignant [Unknown]

NARRATIVE: CASE EVENT DATE: 20190905
